FAERS Safety Report 13529009 (Version 2)
Quarter: 2017Q4

REPORT INFORMATION
  Report Type: Spontaneous
  Country: US (occurrence: US)
  Receive Date: 20170509
  Receipt Date: 20171101
  Transmission Date: 20180320
  Serious: Yes (Hospitalization)
  Sender: FDA-Public Use
  Company Number: US-VIFOR (INTERNATIONAL) INC.-VIT-2017-04985

PATIENT
  Age: 64 Year
  Sex: Female

DRUGS (13)
  1. CARVEDILOL. [Concomitant]
     Active Substance: CARVEDILOL
  2. VELTASSA [Suspect]
     Active Substance: PATIROMER
     Indication: HYPERKALAEMIA
     Route: 048
     Dates: start: 20170113, end: 201704
  3. VELTASSA [Suspect]
     Active Substance: PATIROMER
     Route: 048
     Dates: start: 20170501
  4. AMLODIPINE [Concomitant]
     Active Substance: AMLODIPINE BESYLATE
  5. PRESERVISION [Concomitant]
     Active Substance: MINERALS\VITAMINS
  6. OMEPRAZOLE. [Concomitant]
     Active Substance: OMEPRAZOLE
  7. MONTELUKAST [Concomitant]
     Active Substance: MONTELUKAST SODIUM
  8. LIDOCAINE~~PRILOCAINE [Concomitant]
  9. MAGNESIUM HYDROXIDE. [Concomitant]
     Active Substance: MAGNESIUM HYDROXIDE
  10. FISH OIL [Concomitant]
     Active Substance: FISH OIL
  11. CROMOGLICATE SODIUM [Concomitant]
     Active Substance: CROMOLYN SODIUM
  12. LOSARTAN. [Concomitant]
     Active Substance: LOSARTAN
  13. FOSRENOL [Concomitant]
     Active Substance: LANTHANUM CARBONATE

REACTIONS (3)
  - Full blood count decreased [Unknown]
  - Gastrointestinal polyp haemorrhage [Unknown]
  - Drug dose omission [Unknown]

NARRATIVE: CASE EVENT DATE: 201704
